FAERS Safety Report 23571851 (Version 5)
Quarter: 2024Q3

REPORT INFORMATION
  Report Type: Spontaneous
  Country: GB (occurrence: GB)
  Receive Date: 20240227
  Receipt Date: 20240807
  Transmission Date: 20241017
  Serious: Yes (Hospitalization, Other)
  Sender: BAYER
  Company Number: None

PATIENT
  Age: 30 Year
  Sex: Female

DRUGS (1)
  1. MIRENA [Suspect]
     Active Substance: LEVONORGESTREL
     Indication: Contraception
     Dosage: 20?G/DAY
     Route: 015

REACTIONS (8)
  - Uterine perforation [None]
  - Device breakage [None]
  - Deafness [Recovered/Resolved]
  - Diplopia [Recovered/Resolved]
  - Arthralgia [Recovered/Resolved]
  - Tinnitus [None]
  - Complication of device removal [None]
  - Procedural pain [None]

NARRATIVE: CASE EVENT DATE: 20230501
